FAERS Safety Report 4883785-X (Version None)
Quarter: 2006Q1

REPORT INFORMATION
  Report Type: 
  Country: None (occurrence: None)
  Receive Date: 20060113
  Receipt Date: 20051223
  Transmission Date: 20060701
  Serious: Yes (Hospitalization)
  Sender: FDA-Public Use
  Company Number: US200512004051

PATIENT
  Sex: Female

DRUGS (2)
  1. FORTEO                                                   PEN DISPOSABL [Suspect]
  2. FORTEO PEN                                      PEN, DISPOSABLE [Concomitant]

REACTIONS (1)
  - DIALYSIS [None]
